FAERS Safety Report 20123186 (Version 1)
Quarter: 2021Q4

REPORT INFORMATION
  Report Type: Report from Study
  Country: US (occurrence: US)
  Receive Date: 20211129
  Receipt Date: 20211129
  Transmission Date: 20220303
  Serious: No
  Sender: FDA-Public Use
  Company Number: US-ACADIA PHARMACEUTICALS INC.-ACA-2021-PIM-003929

PATIENT
  Sex: Male

DRUGS (3)
  1. NUPLAZID [Suspect]
     Active Substance: PIMAVANSERIN TARTRATE
     Indication: Parkinson^s disease
     Dosage: PATIENT WAS TAKING NUPLAZID CAPSULE 34 MG EACH NIGHT ALONG WITH 10 MG TABLET IN AM AND IN AFTERNOON
     Route: 048
  2. NUPLAZID [Suspect]
     Active Substance: PIMAVANSERIN TARTRATE
     Indication: Parkinson^s disease
     Dosage: PATIENT WAS TAKING NUPLAZID CAPSULE 34 MG EACH NIGHT ALONG WITH 10 MG TABLET IN AM AND IN AFTERNOON
     Route: 048
  3. HIZENTRA [Concomitant]
     Active Substance: HUMAN IMMUNOGLOBULIN G
     Dosage: 10 GM 50 ML VIAL

REACTIONS (2)
  - Fatigue [Unknown]
  - Overdose [Not Recovered/Not Resolved]
